FAERS Safety Report 4817412-4 (Version None)
Quarter: 2005Q4

REPORT INFORMATION
  Report Type: 
  Country: None (occurrence: None)
  Receive Date: 20051031
  Receipt Date: 20051019
  Transmission Date: 20060501
  Serious: Yes (Hospitalization)
  Sender: FDA-Public Use
  Company Number: 2005146056

PATIENT
  Age: 60 Year
  Sex: Female
  Weight: 71 kg

DRUGS (2)
  1. CABERGOLINE [Suspect]
     Indication: RESTLESS LEGS SYNDROME
     Dosage: 3 MG (1 MG, THREE TIMES DAILY, INTERVAL: DAILY), ORAL
     Route: 048
     Dates: start: 20041212, end: 20051016
  2. IBUPROFEN [Suspect]
     Indication: BACK PAIN
     Dosage: 200 MG (100 MG, TWICE DAILY, INTERVAL: DAILY), ORAL
     Route: 048
     Dates: start: 20051016, end: 20051016

REACTIONS (5)
  - ANAPHYLACTIC SHOCK [None]
  - COMA [None]
  - DRUG HYPERSENSITIVITY [None]
  - MALAISE [None]
  - SYNCOPE [None]
